FAERS Safety Report 12541889 (Version 1)
Quarter: 2016Q3

REPORT INFORMATION
  Report Type: Spontaneous
  Country: US (occurrence: US)
  Receive Date: 20160708
  Receipt Date: 20160708
  Transmission Date: 20161109
  Serious: Yes (Other)
  Sender: FDA-Public Use
  Company Number: US-JNJFOC-20160703452

PATIENT
  Age: 55 Year
  Sex: Female

DRUGS (2)
  1. EVICEL [Suspect]
     Active Substance: FIBRINOGEN HUMAN\THROMBIN HUMAN
     Indication: HAEMOSTASIS
     Route: 061
  2. LOCAL HEMOSTATICS [Concomitant]
     Indication: HAEMOSTASIS
     Route: 061

REACTIONS (1)
  - Wound infection [Unknown]
